FAERS Safety Report 7820399-3 (Version None)
Quarter: 2011Q4

REPORT INFORMATION
  Report Type: 
  Country: None (occurrence: None)
  Receive Date: 20111018
  Receipt Date: 20111010
  Transmission Date: 20120403
  Serious: Yes (Other)
  Sender: FDA-Public Use
  Company Number: GB-ROCHE-GNE323221

PATIENT
  Sex: Male

DRUGS (2)
  1. LUCENTIS [Suspect]
     Indication: AGE-RELATED MACULAR DEGENERATION
     Dosage: 0.5 MG, UNK
     Route: 050
  2. ANTIHYPERTENSIVE [Concomitant]

REACTIONS (4)
  - HEMIPARESIS [None]
  - MOTOR DYSFUNCTION [None]
  - CEREBROVASCULAR ACCIDENT [None]
  - MIGRAINE [None]
